FAERS Safety Report 25775758 (Version 1)
Quarter: 2025Q3

REPORT INFORMATION
  Report Type: Spontaneous
  Country: US (occurrence: US)
  Receive Date: 20250909
  Receipt Date: 20250909
  Transmission Date: 20251020
  Serious: Yes (Other)
  Sender: GLAND PHARMA LTD
  Company Number: US-GLANDPHARMA-US-2025GLNSPO01796

PATIENT

DRUGS (1)
  1. DOXORUBICIN HYDROCHLORIDE [Suspect]
     Active Substance: DOXORUBICIN HYDROCHLORIDE
     Indication: Chemotherapy
     Route: 065

REACTIONS (15)
  - Immunosuppression [Unknown]
  - Neuropathy peripheral [Unknown]
  - Headache [Unknown]
  - Ocular discomfort [Unknown]
  - Onychoclasis [Unknown]
  - Dry skin [Unknown]
  - Dysphagia [Unknown]
  - Fatigue [Unknown]
  - White blood cell count decreased [Unknown]
  - Red blood cell count decreased [Unknown]
  - Paraesthesia [Unknown]
  - Haemoglobin decreased [Unknown]
  - Stomatitis [Unknown]
  - Oral pain [Unknown]
  - Nausea [Unknown]
